FAERS Safety Report 12142080 (Version 4)
Quarter: 2017Q1

REPORT INFORMATION
  Report Type: Report from Study
  Country: US (occurrence: US)
  Receive Date: 20160303
  Receipt Date: 20170124
  Transmission Date: 20170428
  Serious: Yes (Death, Other)
  Sender: FDA-Public Use
  Company Number: US-OTSUKA-2016_005317

PATIENT
  Age: 56 Year
  Sex: Male

DRUGS (1)
  1. ARIPIPRAZOLE. [Suspect]
     Active Substance: ARIPIPRAZOLE
     Indication: SCHIZOPHRENIA
     Dosage: 400 MG, QM
     Route: 030
     Dates: start: 2015, end: 20160224

REACTIONS (2)
  - Death [Fatal]
  - Abscess jaw [Unknown]

NARRATIVE: CASE EVENT DATE: 20160227
